FAERS Safety Report 15821751 (Version 1)
Quarter: 2018Q4

REPORT INFORMATION
  Report Type: Spontaneous
  Country: US (occurrence: US)
  Receive Date: 20181217
  Receipt Date: 20181217
  Transmission Date: 20190205
  Serious: Yes (Hospitalization)
  Sender: FDA-Public Use
  Company Number: None

PATIENT
  Age: 9 Year
  Sex: Male
  Weight: 40.37 kg

DRUGS (2)
  1. GENERIC HYDROCORTISONE 10 MG QUALIFEST [Suspect]
     Active Substance: HYDROCORTISONE
     Indication: ADRENOGENITAL SYNDROME
     Route: 048
     Dates: start: 20131201, end: 20131222
  2. FLORINEF ACETATE [Concomitant]
     Active Substance: FLUDROCORTISONE ACETATE

REACTIONS (3)
  - Adrenocortical insufficiency acute [None]
  - Product substitution issue [None]
  - Influenza [None]

NARRATIVE: CASE EVENT DATE: 20131222
